FAERS Safety Report 5229138-6 (Version None)
Quarter: 2007Q1

REPORT INFORMATION
  Report Type: 
  Country: None (occurrence: None)
  Receive Date: 20061201
  Receipt Date: 20060913
  Transmission Date: 20070707
  Serious: No
  Sender: FDA-Public Use
  Company Number: US200609003055

PATIENT
  Age: 59 Year
  Sex: Female

DRUGS (5)
  1. CYMBALTA [Suspect]
     Indication: DEPRESSION
     Dosage: 30 MG, DAILY (1/D), ORAL 30 MG, 2/D, ORAL 30 MG, DAILY (1/D), ORAL
     Route: 048
     Dates: start: 20060101, end: 20060101
  2. CYMBALTA [Suspect]
     Indication: DEPRESSION
     Dosage: 30 MG, DAILY (1/D), ORAL 30 MG, 2/D, ORAL 30 MG, DAILY (1/D), ORAL
     Route: 048
     Dates: start: 20060801, end: 20060801
  3. CYMBALTA [Suspect]
     Indication: DEPRESSION
     Dosage: 30 MG, DAILY (1/D), ORAL 30 MG, 2/D, ORAL 30 MG, DAILY (1/D), ORAL
     Route: 048
     Dates: start: 20060101
  4. AMBIEN [Concomitant]
  5. HERBALIFE PRODUCTS (HERBAL EXTRACTS NOS) [Concomitant]

REACTIONS (6)
  - ANXIETY [None]
  - APATHY [None]
  - FATIGUE [None]
  - LISTLESS [None]
  - MIDDLE INSOMNIA [None]
  - THINKING ABNORMAL [None]
